FAERS Safety Report 9499863 (Version 1)
Quarter: 2013Q3

REPORT INFORMATION
  Report Type: Spontaneous
  Country: GB (occurrence: None)
  Receive Date: 20130903
  Receipt Date: 20130903
  Transmission Date: 20140515
  Serious: Yes (Other)
  Sender: FDA-Public Use
  Company Number: AUR-APL-2013-07068

PATIENT
  Sex: Female

DRUGS (2)
  1. SIMVASTATIN [Suspect]
     Indication: BLOOD CHOLESTEROL INCREASED
     Dates: start: 201305
  2. RISEDRONATE SODIUM (RISEDRONATE SODIUM) [Concomitant]

REACTIONS (5)
  - Liver injury [None]
  - Groin pain [None]
  - Back pain [None]
  - Pain in extremity [None]
  - Gait disturbance [None]
